FAERS Safety Report 15319773 (Version 3)
Quarter: 2018Q3

REPORT INFORMATION
  Report Type: Spontaneous
  Country: VN (occurrence: VN)
  Receive Date: 20180827
  Receipt Date: 20180829
  Transmission Date: 20181010
  Serious: Yes (Hospitalization)
  Sender: FDA-Public Use
  Company Number: VN-ROCHE-2175115

PATIENT
  Age: 58 Year
  Sex: Female

DRUGS (2)
  1. ACTEMRA [Suspect]
     Active Substance: TOCILIZUMAB
     Indication: RHEUMATOID ARTHRITIS
     Route: 041
     Dates: start: 20180809
  2. METHOTREXATE. [Suspect]
     Active Substance: METHOTREXATE
     Indication: RHEUMATOID ARTHRITIS
     Route: 065

REACTIONS (2)
  - Sepsis [Recovering/Resolving]
  - Inflammatory bowel disease [Recovering/Resolving]
